FAERS Safety Report 11497339 (Version 4)
Quarter: 2018Q2

REPORT INFORMATION
  Report Type: Spontaneous
  Country: US (occurrence: US)
  Receive Date: 20150911
  Receipt Date: 20180510
  Transmission Date: 20180711
  Serious: Yes (Other)
  Sender: FDA-Public Use
  Company Number: US-ASTRAZENECA-2014SE82513

PATIENT
  Age: 49 Year
  Sex: Female
  Weight: 57.2 kg

DRUGS (20)
  1. BYDUREON [Suspect]
     Active Substance: EXENATIDE
     Indication: TYPE 2 DIABETES MELLITUS
     Route: 058
     Dates: start: 201212
  2. CLONAZEPAM. [Concomitant]
     Active Substance: CLONAZEPAM
     Route: 048
  3. TYLENOL WITH CODEINE [Concomitant]
     Active Substance: ACETAMINOPHEN\CODEINE PHOSPHATE
     Route: 048
  4. BYDUREON [Suspect]
     Active Substance: EXENATIDE
     Indication: TYPE 2 DIABETES MELLITUS
     Route: 058
     Dates: start: 2015
  5. ZANAFLEX [Concomitant]
     Active Substance: TIZANIDINE HYDROCHLORIDE
  6. TIZANIDINE. [Concomitant]
     Active Substance: TIZANIDINE
     Route: 048
  7. BYDUREON BCISE [Suspect]
     Active Substance: EXENATIDE
  8. GABAPENTIN. [Concomitant]
     Active Substance: GABAPENTIN
     Route: 048
  9. VITAMIN B12 [Concomitant]
     Active Substance: CYANOCOBALAMIN
     Dosage: 1000 DAILY
     Route: 048
  10. JARDIANCE [Concomitant]
     Active Substance: EMPAGLIFLOZIN
  11. VITAMIN D3 [Concomitant]
     Active Substance: CHOLECALCIFEROL
     Dosage: 2000 DAILY
     Route: 048
  12. BYETTA [Suspect]
     Active Substance: EXENATIDE
     Indication: TYPE 2 DIABETES MELLITUS
     Dosage: 0.25 MG/ML, 5 MCG TWO TIMES A DAY
     Route: 058
     Dates: start: 2011, end: 20121215
  13. GABAPENTIN. [Concomitant]
     Active Substance: GABAPENTIN
     Route: 048
  14. ONGLYZA [Concomitant]
     Active Substance: SAXAGLIPTIN HYDROCHLORIDE
     Dates: end: 2011
  15. BYDUREON [Suspect]
     Active Substance: EXENATIDE
     Indication: TYPE 2 DIABETES MELLITUS
     Route: 058
     Dates: start: 2014, end: 2015
  16. METFORMIN [Concomitant]
     Active Substance: METFORMIN HYDROCHLORIDE
     Dates: end: 2011
  17. BYETTA [Suspect]
     Active Substance: EXENATIDE
     Indication: TYPE 2 DIABETES MELLITUS
     Dosage: 0.25 MG/ML, 5 MCG TWO TIMES A DAY
     Route: 058
     Dates: start: 201202
  18. TYLENOL [Concomitant]
     Active Substance: ACETAMINOPHEN
  19. ZANTAC [Concomitant]
     Active Substance: RANITIDINE HYDROCHLORIDE
     Route: 048
  20. LORAZEPAM. [Concomitant]
     Active Substance: LORAZEPAM
     Dosage: 1.0MG AS REQUIRED
     Route: 048

REACTIONS (24)
  - Colon cancer [Unknown]
  - Irritable bowel syndrome [Unknown]
  - Injection site pain [Unknown]
  - Device issue [Unknown]
  - Large intestine polyp [Recovered/Resolved]
  - Blood glucose fluctuation [Unknown]
  - Glycosylated haemoglobin increased [Unknown]
  - Injection site bruising [Unknown]
  - Injection site haemorrhage [Recovered/Resolved]
  - Anaemia [Unknown]
  - Sudden onset of sleep [Recovered/Resolved]
  - Road traffic accident [Unknown]
  - Injection site extravasation [Unknown]
  - Constipation [Unknown]
  - Memory impairment [Unknown]
  - Abdominal tenderness [Not Recovered/Not Resolved]
  - Weight decreased [Unknown]
  - Visual impairment [Unknown]
  - Blood glucose increased [Unknown]
  - Drug dose omission [Unknown]
  - Insurance issue [Unknown]
  - Underdose [Unknown]
  - Intentional device misuse [Unknown]
  - Drug ineffective [Unknown]

NARRATIVE: CASE EVENT DATE: 2011
